FAERS Safety Report 5258297-4 (Version None)
Quarter: 2007Q1

REPORT INFORMATION
  Report Type: 
  Country: None (occurrence: None)
  Receive Date: 20070306
  Receipt Date: 20070306
  Transmission Date: 20070707
  Serious: Yes (Other)
  Sender: FDA-Public Use
  Company Number: None

PATIENT
  Age: 64 Year
  Sex: Male
  Weight: 86.1834 kg

DRUGS (1)
  1. BION TEARS [Suspect]
     Indication: DRY EYE
     Dosage: 0.015 FL. OZ EACH VIAL 2-3 TIMES A DAY
     Dates: start: 20050901, end: 20070305

REACTIONS (3)
  - EYE PAIN [None]
  - FOREIGN BODY IN EYE [None]
  - PHARMACEUTICAL PRODUCT COMPLAINT [None]
